FAERS Safety Report 17464356 (Version 5)
Quarter: 2022Q1

REPORT INFORMATION
  Report Type: Spontaneous
  Country: US (occurrence: US)
  Receive Date: 20200226
  Receipt Date: 20220123
  Transmission Date: 20220424
  Serious: No
  Sender: FDA-Public Use
  Company Number: US-ACORDA-ACO_163949_2020

PATIENT
  Sex: Female

DRUGS (10)
  1. AMPYRA [Suspect]
     Active Substance: DALFAMPRIDINE
     Indication: Multiple sclerosis
     Dosage: 10 MILLIGRAM, BID
     Route: 048
     Dates: start: 20110903, end: 2019
  2. AMPYRA [Suspect]
     Active Substance: DALFAMPRIDINE
     Indication: Gait disturbance
     Dosage: UNK
     Dates: start: 2019
  3. DALFAMPRIDINE [Suspect]
     Active Substance: DALFAMPRIDINE
     Indication: Multiple sclerosis
     Dosage: 10 MILLIGRAM, BID
     Route: 048
     Dates: start: 2019, end: 2019
  4. AMANTADINE [Concomitant]
     Active Substance: AMANTADINE
     Indication: Product used for unknown indication
     Dosage: UNK
     Route: 065
  5. BETASERON [Concomitant]
     Active Substance: INTERFERON BETA-1B
     Indication: Product used for unknown indication
     Dosage: UNK
     Route: 065
  6. DOCUSATE SODIUM [Concomitant]
     Active Substance: DOCUSATE SODIUM
     Indication: Product used for unknown indication
     Dosage: UNK
     Route: 065
  7. LEVOXYL [Concomitant]
     Active Substance: LEVOTHYROXINE SODIUM
     Indication: Product used for unknown indication
     Dosage: UNK
     Route: 065
  8. LOSARTAN POTASSIUM [Concomitant]
     Active Substance: LOSARTAN POTASSIUM
     Indication: Product used for unknown indication
     Dosage: UNK
     Route: 065
  9. SERTRALINE [Concomitant]
     Active Substance: SERTRALINE HYDROCHLORIDE
     Indication: Product used for unknown indication
     Dosage: UNK
     Route: 065
  10. VITAMIN D NOS [Concomitant]
     Active Substance: VITAMIN D NOS
     Indication: Product used for unknown indication
     Dosage: UNK
     Route: 065

REACTIONS (8)
  - Carpal tunnel syndrome [Recovering/Resolving]
  - Feeling abnormal [Recovering/Resolving]
  - Impaired driving ability [Recovering/Resolving]
  - Fall [Recovering/Resolving]
  - Insomnia [Recovering/Resolving]
  - Nausea [Recovering/Resolving]
  - Dizziness [Not Recovered/Not Resolved]
  - Balance disorder [Not Recovered/Not Resolved]

NARRATIVE: CASE EVENT DATE: 20190101
